FAERS Safety Report 5482257-1 (Version None)
Quarter: 2007Q4

REPORT INFORMATION
  Report Type: 
  Country: None (occurrence: None)
  Receive Date: 20071011
  Receipt Date: 20071001
  Transmission Date: 20080405
  Serious: Yes (Other)
  Sender: FDA-Public Use
  Company Number: US-BAYER-200713086BWH

PATIENT
  Age: 69 Year
  Sex: Male
  Weight: 99 kg

DRUGS (8)
  1. LEVITRA [Suspect]
     Indication: ERECTILE DYSFUNCTION
     Route: 048
     Dates: start: 20061201
  2. DICYCLOMINE [Concomitant]
  3. PRAMIPEXOLE [Concomitant]
  4. SIMVASTATIN [Concomitant]
  5. LISINOPRIL [Concomitant]
  6. NIACIN [Concomitant]
  7. ASPIRIN [Concomitant]
  8. TIMOLOL MALEATE [Concomitant]
     Indication: ABNORMAL SENSATION IN EYE

REACTIONS (1)
  - BLINDNESS UNILATERAL [None]
